FAERS Safety Report 9944366 (Version 1)
Quarter: 2014Q1

REPORT INFORMATION
  Report Type: Report from Study
  Country: US (occurrence: US)
  Receive Date: 20140303
  Receipt Date: 20140303
  Transmission Date: 20141002
  Serious: No
  Sender: FDA-Public Use
  Company Number: US-ABBVIE-13P-163-1051086-00

PATIENT
  Age: 25 Year
  Sex: Female

DRUGS (4)
  1. HUMIRA [Suspect]
     Indication: CROHN^S DISEASE
     Dates: start: 20120914
  2. PENTASA [Concomitant]
     Indication: CROHN^S DISEASE
     Dosage: 4 TABLETS, TWICE DAILY
  3. IMURAN [Concomitant]
     Indication: CROHN^S DISEASE
     Dosage: 5 TABLETS DAILY
  4. ADDERALL [Concomitant]
     Indication: ATTENTION DEFICIT/HYPERACTIVITY DISORDER
     Dosage: 20MG IN THE MORNING AND 5MG IN AFTERNOON

REACTIONS (1)
  - Arthralgia [Not Recovered/Not Resolved]
